FAERS Safety Report 25456640 (Version 1)
Quarter: 2025Q2

REPORT INFORMATION
  Report Type: Spontaneous
  Country: CA (occurrence: CA)
  Receive Date: 20250619
  Receipt Date: 20250619
  Transmission Date: 20250716
  Serious: Yes (Hospitalization)
  Sender: BAUSCH AND LOMB
  Company Number: CA-BAUSCH-BL-2024-002435

PATIENT
  Age: 30 Year
  Sex: Male

DRUGS (61)
  1. DICLOFENAC SODIUM [Suspect]
     Active Substance: DICLOFENAC SODIUM
     Indication: Neuralgia
     Route: 065
  2. DICLOFENAC SODIUM [Suspect]
     Active Substance: DICLOFENAC SODIUM
     Indication: Guillain-Barre syndrome
  3. VENLAFAXINE HYDROCHLORIDE [Suspect]
     Active Substance: VENLAFAXINE HYDROCHLORIDE
     Indication: Guillain-Barre syndrome
     Route: 065
  4. VENLAFAXINE HYDROCHLORIDE [Suspect]
     Active Substance: VENLAFAXINE HYDROCHLORIDE
     Indication: Neuralgia
     Route: 065
  5. NABILONE [Suspect]
     Active Substance: NABILONE
     Indication: Guillain-Barre syndrome
     Route: 065
  6. NABILONE [Suspect]
     Active Substance: NABILONE
     Indication: Neuralgia
     Route: 065
  7. NABILONE [Suspect]
     Active Substance: NABILONE
     Route: 065
  8. NABILONE [Suspect]
     Active Substance: NABILONE
     Route: 065
  9. HYDROMORPHONE [Suspect]
     Active Substance: HYDROMORPHONE
     Indication: Guillain-Barre syndrome
     Route: 042
  10. HYDROMORPHONE [Suspect]
     Active Substance: HYDROMORPHONE
     Indication: Neuralgia
     Route: 048
  11. HYDROMORPHONE [Suspect]
     Active Substance: HYDROMORPHONE
     Route: 030
  12. HYDROMORPHONE [Suspect]
     Active Substance: HYDROMORPHONE
     Route: 030
  13. HYDROMORPHONE [Suspect]
     Active Substance: HYDROMORPHONE
     Route: 048
  14. HYDROMORPHONE [Suspect]
     Active Substance: HYDROMORPHONE
     Route: 065
  15. ACETAMINOPHEN [Suspect]
     Active Substance: ACETAMINOPHEN
     Indication: Guillain-Barre syndrome
     Route: 065
  16. ACETAMINOPHEN [Suspect]
     Active Substance: ACETAMINOPHEN
     Indication: Neuralgia
     Route: 065
  17. ACETAMINOPHEN [Suspect]
     Active Substance: ACETAMINOPHEN
     Route: 062
  18. ACETAMINOPHEN [Suspect]
     Active Substance: ACETAMINOPHEN
     Route: 062
  19. ACETAMINOPHEN [Suspect]
     Active Substance: ACETAMINOPHEN
     Route: 062
  20. ACETAMINOPHEN [Suspect]
     Active Substance: ACETAMINOPHEN
     Route: 065
  21. DILAUDID [Suspect]
     Active Substance: HYDROMORPHONE HYDROCHLORIDE
     Indication: Guillain-Barre syndrome
     Route: 065
  22. DILAUDID [Suspect]
     Active Substance: HYDROMORPHONE HYDROCHLORIDE
     Indication: Neuralgia
     Route: 065
  23. DILAUDID [Suspect]
     Active Substance: HYDROMORPHONE HYDROCHLORIDE
     Route: 042
  24. FENTANYL [Suspect]
     Active Substance: FENTANYL
     Indication: Guillain-Barre syndrome
     Route: 065
  25. FENTANYL [Suspect]
     Active Substance: FENTANYL
     Indication: Neuralgia
     Route: 065
  26. FENTANYL [Suspect]
     Active Substance: FENTANYL
     Route: 062
  27. FENTANYL [Suspect]
     Active Substance: FENTANYL
     Route: 062
  28. GABAPENTIN [Suspect]
     Active Substance: GABAPENTIN
     Indication: Guillain-Barre syndrome
     Route: 065
  29. GABAPENTIN [Suspect]
     Active Substance: GABAPENTIN
     Indication: Neuralgia
     Route: 065
  30. GABAPENTIN [Suspect]
     Active Substance: GABAPENTIN
     Route: 048
  31. GABAPENTIN [Suspect]
     Active Substance: GABAPENTIN
     Route: 048
  32. GABAPENTIN [Suspect]
     Active Substance: GABAPENTIN
     Route: 048
  33. GABAPENTIN [Suspect]
     Active Substance: GABAPENTIN
     Route: 048
  34. GABAPENTIN [Suspect]
     Active Substance: GABAPENTIN
     Route: 048
  35. GABAPENTIN [Suspect]
     Active Substance: GABAPENTIN
     Route: 048
  36. GABAPENTIN [Suspect]
     Active Substance: GABAPENTIN
     Route: 048
  37. GABAPENTIN [Suspect]
     Active Substance: GABAPENTIN
     Route: 048
  38. GABAPENTIN [Suspect]
     Active Substance: GABAPENTIN
     Route: 048
  39. GABAPENTIN [Suspect]
     Active Substance: GABAPENTIN
     Route: 065
  40. IBUPROFEN [Suspect]
     Active Substance: IBUPROFEN
     Indication: Guillain-Barre syndrome
     Route: 065
  41. IBUPROFEN [Suspect]
     Active Substance: IBUPROFEN
     Indication: Neuralgia
     Route: 042
  42. KETAMINE [Suspect]
     Active Substance: KETAMINE
     Indication: Guillain-Barre syndrome
     Route: 065
  43. KETAMINE [Suspect]
     Active Substance: KETAMINE
     Indication: Neuralgia
     Route: 048
  44. KETAMINE [Suspect]
     Active Substance: KETAMINE
     Route: 042
  45. KETAMINE [Suspect]
     Active Substance: KETAMINE
     Route: 042
  46. LIDOCAINE [Suspect]
     Active Substance: LIDOCAINE
     Indication: Guillain-Barre syndrome
     Route: 061
  47. LIDOCAINE [Suspect]
     Active Substance: LIDOCAINE
     Indication: Neuralgia
     Route: 065
  48. OLANZAPINE [Suspect]
     Active Substance: OLANZAPINE
     Indication: Guillain-Barre syndrome
     Route: 065
  49. OLANZAPINE [Suspect]
     Active Substance: OLANZAPINE
     Indication: Neuralgia
     Route: 065
  50. OLANZAPINE [Suspect]
     Active Substance: OLANZAPINE
     Route: 065
  51. OLANZAPINE [Suspect]
     Active Substance: OLANZAPINE
     Route: 065
  52. ZOPICLONE [Suspect]
     Active Substance: ZOPICLONE
     Indication: Guillain-Barre syndrome
     Route: 065
  53. ZOPICLONE [Suspect]
     Active Substance: ZOPICLONE
     Indication: Neuralgia
     Route: 065
  54. PHENYTOIN [Suspect]
     Active Substance: PHENYTOIN
     Indication: Neuralgia
     Route: 065
  55. PHENYTOIN [Suspect]
     Active Substance: PHENYTOIN
     Route: 065
  56. IMMUNE GLOBULIN NOS [Suspect]
     Active Substance: IMMUNE GLOBULIN NOS
     Indication: Guillain-Barre syndrome
     Route: 065
  57. NABILONE [Suspect]
     Active Substance: NABILONE
     Indication: Product used for unknown indication
     Route: 042
  58. NABILONE [Suspect]
     Active Substance: NABILONE
     Route: 042
  59. BUPIVACAINE [Concomitant]
     Active Substance: BUPIVACAINE
     Indication: Neuralgia
  60. MORPHINE [Concomitant]
     Active Substance: MORPHINE
     Indication: Neuralgia
  61. NORTRIPTYLINE [Concomitant]
     Active Substance: NORTRIPTYLINE
     Indication: Neuralgia

REACTIONS (3)
  - Inspiratory capacity decreased [Unknown]
  - Drug ineffective [Unknown]
  - Incorrect dose administered [Unknown]
